FAERS Safety Report 6568737-6 (Version None)
Quarter: 2010Q1

REPORT INFORMATION
  Report Type: 
  Country: None (occurrence: None)
  Receive Date: 20100203
  Receipt Date: 20100125
  Transmission Date: 20100710
  Serious: Yes (Life-Threatening)
  Sender: FDA-Public Use
  Company Number: GXKR2010CH01144

PATIENT
  Age: 19 Year
  Sex: Male

DRUGS (2)
  1. VALPROIC ACID (NGX) [Suspect]
     Indication: EPILEPSY
     Route: 065
  2. VALPROIC ACID (NGX) [Suspect]
     Dosage: 1 G, QD
     Route: 065

REACTIONS (17)
  - AGITATION [None]
  - AREFLEXIA [None]
  - ASPIRATION [None]
  - COMA [None]
  - CONFUSIONAL STATE [None]
  - CONTINUOUS HAEMODIAFILTRATION [None]
  - DIABETES INSIPIDUS [None]
  - DRUG TOXICITY [None]
  - ENDOTRACHEAL INTUBATION [None]
  - HYPERAMMONAEMIA [None]
  - LACTIC ACIDOSIS [None]
  - LOSS OF CONSCIOUSNESS [None]
  - OVERDOSE [None]
  - PANCYTOPENIA [None]
  - PYREXIA [None]
  - VOMITING [None]
  - WEANING FAILURE [None]
